FAERS Safety Report 9741568 (Version 1)
Quarter: 2013Q4

REPORT INFORMATION
  Report Type: Report from Study
  Country: US (occurrence: US)
  Receive Date: 20131210
  Receipt Date: 20131210
  Transmission Date: 20140711
  Serious: Yes (Death)
  Sender: FDA-Public Use
  Company Number: US-ROCHE-1317076

PATIENT
  Sex: Female

DRUGS (6)
  1. AVASTIN [Suspect]
     Indication: OVARIAN CANCER
     Dosage: 1000MG IN 100ML NORMAL SALINE
     Route: 041
     Dates: start: 20101111
  2. ABRAXANE [Concomitant]
     Route: 041
  3. DEXAMETHASONE [Concomitant]
     Dosage: GIVEN 30MINUTES PRIOR TO CHEMOTHERAPY
     Route: 048
  4. ZOFRAN [Concomitant]
     Dosage: GIVEN 30MINUTES PRIOR TO CHEMOTHERAPY
     Route: 048
  5. NORMAL SALINE [Concomitant]
     Dosage: 250CC
     Route: 065
  6. HEPARIN [Concomitant]
     Dosage: 500UNITS
     Route: 065

REACTIONS (1)
  - Death [Fatal]
